FAERS Safety Report 13456598 (Version 2)
Quarter: 2017Q2

REPORT INFORMATION
  Report Type: Spontaneous
  Country: US (occurrence: US)
  Receive Date: 20170418
  Receipt Date: 20170505
  Transmission Date: 20170830
  Serious: No
  Sender: FDA-Public Use
  Company Number: US-MATRIXX INITIATIVES, INC.-1065499

PATIENT
  Age: 50 Year
  Sex: Female
  Weight: 53.64 kg

DRUGS (2)
  1. ZICAM EXTREME CONGESTION RELIEF (OXYMETAZOLINE HYDROCHLORIDE) [Suspect]
     Active Substance: OXYMETAZOLINE HYDROCHLORIDE
     Indication: VIRAL UPPER RESPIRATORY TRACT INFECTION
     Route: 045
     Dates: start: 20170410, end: 20170411
  2. UNSPECIFIED SPINAL CORD INJURY MEDICATIONS [Concomitant]

REACTIONS (1)
  - Anosmia [Recovered/Resolved]
